FAERS Safety Report 21236890 (Version 2)
Quarter: 2022Q3

REPORT INFORMATION
  Report Type: Spontaneous
  Country: EG (occurrence: EG)
  Receive Date: 20220822
  Receipt Date: 20220902
  Transmission Date: 20221027
  Serious: Yes (Other)
  Sender: FDA-Public Use
  Company Number: EG-NOVOPROD-946375

PATIENT
  Age: 44 Year
  Sex: Female
  Weight: 106 kg

DRUGS (5)
  1. INSULIN HUMAN [Suspect]
     Active Substance: INSULIN HUMAN
     Indication: Type 1 diabetes mellitus
     Dosage: 80 IU, QD (50 AT MORNING, 30 AT NIGHT)
     Route: 058
     Dates: start: 2014, end: 202112
  2. DIOSMIN\HESPERIDIN [Concomitant]
     Active Substance: DIOSMIN\HESPERIDIN
     Indication: Cardiovascular disorder
     Dosage: 2 DF, QD
     Route: 048
     Dates: start: 2017
  3. BISOPROLOL FUMARATE [Concomitant]
     Active Substance: BISOPROLOL FUMARATE
     Indication: Hypertension
     Dosage: 1 DF, QD (1 TABLET PER DAY AT NIGHT)
     Route: 048
     Dates: start: 2014
  4. EXAMIDE [Concomitant]
     Dosage: 10 MG, QD
     Route: 048
  5. EXAMIDE [Concomitant]
     Indication: Hypertension
     Dosage: 5 MG, QD
     Route: 048
     Dates: start: 2016

REACTIONS (6)
  - Lower limb fracture [Recovered/Resolved]
  - Fluid retention [Recovered/Resolved]
  - Heart rate increased [Recovered/Resolved]
  - COVID-19 [Recovered/Resolved]
  - Injection site mass [Recovered/Resolved]
  - Injection site haemorrhage [Recovered/Resolved]

NARRATIVE: CASE EVENT DATE: 20200606
